FAERS Safety Report 16402086 (Version 6)
Quarter: 2025Q3

REPORT INFORMATION
  Report Type: Spontaneous
  Country: EU (occurrence: EU)
  Receive Date: 20190607
  Receipt Date: 20250703
  Transmission Date: 20251021
  Serious: Yes (Hospitalization, Other)
  Sender: NOVARTIS
  Company Number: PHHY2019IT125754

PATIENT
  Age: 76 Year
  Sex: Male

DRUGS (8)
  1. IMATINIB [Interacting]
     Active Substance: IMATINIB
     Indication: Chronic myeloid leukaemia
     Route: 065
  2. IMATINIB [Interacting]
     Active Substance: IMATINIB
     Indication: Systemic scleroderma
  3. ACETAMINOPHEN [Interacting]
     Active Substance: ACETAMINOPHEN
     Indication: Sciatica
     Route: 065
  4. ACETAMINOPHEN [Interacting]
     Active Substance: ACETAMINOPHEN
     Indication: Sciatica
  5. ACETAMINOPHEN [Interacting]
     Active Substance: ACETAMINOPHEN
     Indication: Sciatic nerve injury
  6. EDOXABAN [Concomitant]
     Active Substance: EDOXABAN
     Indication: Anticoagulant therapy
     Dosage: 30 MG, QD
     Route: 065
  7. EDOXABAN [Concomitant]
     Active Substance: EDOXABAN
     Route: 065
  8. EDOXABAN [Concomitant]
     Active Substance: EDOXABAN
     Route: 065

REACTIONS (4)
  - Haematochezia [Unknown]
  - Drug interaction [Unknown]
  - Transaminases increased [Unknown]
  - Abdominal pain [Unknown]
